FAERS Safety Report 7006365-9 (Version None)
Quarter: 2010Q3

REPORT INFORMATION
  Report Type: 
  Country: None (occurrence: None)
  Receive Date: 20100921
  Receipt Date: 20100913
  Transmission Date: 20110219
  Serious: Yes (Death)
  Sender: FDA-Public Use
  Company Number: US-AMGEN-QUU438328

PATIENT
  Sex: Male

DRUGS (3)
  1. NPLATE [Suspect]
     Indication: IDIOPATHIC THROMBOCYTOPENIC PURPURA
     Dates: start: 20100215
  2. RITUXIMAB [Concomitant]
     Dates: start: 20070129
  3. UNSPECIFIED MEDICATION [Concomitant]

REACTIONS (1)
  - DEATH [None]
